FAERS Safety Report 7285808-X (Version None)
Quarter: 2011Q1

REPORT INFORMATION
  Report Type: 
  Country: None (occurrence: None)
  Receive Date: 20110210
  Receipt Date: 20110113
  Transmission Date: 20110831
  Serious: No
  Sender: FDA-Public Use
  Company Number: US-B.I. PHARMACEUTICALS,INC./RIDGEFIELD-2011-BP-02328BP

PATIENT

DRUGS (1)
  1. MIRAPEX [Suspect]
     Dates: start: 20000101

REACTIONS (4)
  - DEPRESSION [None]
  - PATHOLOGICAL GAMBLING [None]
  - HYPERSEXUALITY [None]
  - SUICIDAL IDEATION [None]
